FAERS Safety Report 14277830 (Version 13)
Quarter: 2020Q3

REPORT INFORMATION
  Report Type: Spontaneous
  Country: NL (occurrence: NL)
  Receive Date: 20171212
  Receipt Date: 20200819
  Transmission Date: 20201102
  Serious: Yes (Other)
  Sender: FDA-Public Use
  Company Number: NL-MYLANLABS-2017M1078532

PATIENT
  Age: 67 Year
  Sex: Male

DRUGS (25)
  1. AMANTADINE HYDROCHLORIDE. [Suspect]
     Active Substance: AMANTADINE HYDROCHLORIDE
     Indication: PARKINSON^S DISEASE
     Dosage: UNK
  2. ROPINIROLE. [Suspect]
     Active Substance: ROPINIROLE
     Indication: PARKINSON^S DISEASE
     Dosage: 9 MILLIGRAM
     Route: 065
  3. SELEGILINE MYLAN [Suspect]
     Active Substance: SELEGILINE
     Indication: PARKINSON^S DISEASE
     Dosage: 10 MILLIGRAM
  4. LEVODOPA/CARBIDOPA/ENTACAPONE [Suspect]
     Active Substance: CARBIDOPA\ENTACAPONE\LEVODOPA
     Indication: PARKINSON^S DISEASE
     Dosage: 100 MILLIGRAM
     Route: 016
  5. QUETIAPINE APOTEX [Suspect]
     Active Substance: QUETIAPINE
     Indication: PARKINSON^S DISEASE
  6. MADOPAR [Suspect]
     Active Substance: BENSERAZIDE HYDROCHLORIDE\LEVODOPA
     Dosage: 125 MILLIGRAM
     Route: 065
  7. CLONAZEPAM. [Suspect]
     Active Substance: CLONAZEPAM
     Dosage: 1 MILLIGRAM, QD
     Route: 065
  8. QUETIAPINE MYLAN [Suspect]
     Active Substance: QUETIAPINE
     Indication: PARKINSON^S DISEASE PSYCHOSIS
     Dosage: UNK
  9. AMANTADINE HYDROCHLORIDE. [Suspect]
     Active Substance: AMANTADINE HYDROCHLORIDE
     Indication: PARKINSON^S DISEASE
     Dosage: 200 MILLIGRAM
     Route: 065
  10. MADOPAR [Suspect]
     Active Substance: BENSERAZIDE HYDROCHLORIDE\LEVODOPA
     Indication: PARKINSON^S DISEASE
     Dosage: 250 MILLIGRAM
     Route: 065
  11. CARBIDOPA W/ENTACAPONE/LEVODOPA [Suspect]
     Active Substance: CARBIDOPA\ENTACAPONE\LEVODOPA
     Indication: PARKINSON^S DISEASE
     Dosage: 100 MILLIGRAM
     Route: 065
  12. CLONAZEPAM. [Suspect]
     Active Substance: CLONAZEPAM
     Indication: SEDATION
     Dosage: 1 MILLIGRAM, QH
  13. CLOZAPINE. [Suspect]
     Active Substance: CLOZAPINE
     Indication: PARKINSON^S DISEASE PSYCHOSIS
     Dosage: 75 MILLIGRAM
     Route: 065
  14. PERGOLIDE [Suspect]
     Active Substance: PERGOLIDE
     Indication: PARKINSON^S DISEASE PSYCHOSIS
     Dosage: 0.75 MILLIGRAM
     Route: 065
  15. CLONAZEPAM. [Suspect]
     Active Substance: CLONAZEPAM
     Dosage: UNK
     Route: 016
  16. REMERON [Suspect]
     Active Substance: MIRTAZAPINE
     Indication: SEDATION
     Dosage: 30 MILLIGRAM
  17. QUETIAPINE APOTEX [Suspect]
     Active Substance: QUETIAPINE
     Indication: PARKINSON^S DISEASE PSYCHOSIS
     Dosage: 400 MILLIGRAM
     Route: 065
  18. RIVASTIGMINE. [Suspect]
     Active Substance: RIVASTIGMINE
     Indication: PARKINSON^S DISEASE PSYCHOSIS
     Dosage: 14.1 MILLIGRAM
     Route: 062
  19. RIVASTIGMINE. [Suspect]
     Active Substance: RIVASTIGMINE
     Dosage: 14.1 MILLIGRAM
     Route: 062
  20. MIRTAZAPINE. [Suspect]
     Active Substance: MIRTAZAPINE
     Indication: SEDATION
     Dosage: 30 MILLIGRAM
     Route: 048
  21. ELDEPRYL [Suspect]
     Active Substance: SELEGILINE HYDROCHLORIDE
     Indication: PARKINSON^S DISEASE
     Dosage: 10 MILLIGRAM
     Route: 016
  22. CARBIDOPA, LEVODOPA AND ENTACAPONE [Suspect]
     Active Substance: CARBIDOPA\ENTACAPONE\LEVODOPA
     Indication: PARKINSON^S DISEASE
     Dosage: 100 MILLIGRAM
     Route: 016
  23. AMANTADINE HYDROCHLORIDE. [Suspect]
     Active Substance: AMANTADINE HYDROCHLORIDE
     Indication: PRODUCT USED FOR UNKNOWN INDICATION
     Dosage: 200 MILLIGRAM
  24. QUETIAPINE FUMARATE. [Suspect]
     Active Substance: QUETIAPINE FUMARATE
     Indication: PRODUCT USED FOR UNKNOWN INDICATION
  25. REMERON [Suspect]
     Active Substance: MIRTAZAPINE
     Dosage: UNK
     Route: 048

REACTIONS (11)
  - Parkinson^s disease psychosis [Recovering/Resolving]
  - Product use in unapproved indication [Unknown]
  - Hallucination, visual [Recovering/Resolving]
  - Hypersomnia [Recovered/Resolved]
  - Screaming [Unknown]
  - Feeling abnormal [Recovering/Resolving]
  - Psychotic disorder [Recovering/Resolving]
  - Drug ineffective [Unknown]
  - Insomnia [Recovered/Resolved]
  - Anxiety [Recovering/Resolving]
  - Condition aggravated [Unknown]
